FAERS Safety Report 22532886 (Version 1)
Quarter: 2023Q2

REPORT INFORMATION
  Report Type: Spontaneous
  Country: ZA (occurrence: ZA)
  Receive Date: 20230607
  Receipt Date: 20230607
  Transmission Date: 20230721
  Serious: Yes (Other)
  Sender: FDA-Public Use
  Company Number: ZA-NOVPHSZ-PHHY2019ZA227708

PATIENT
  Age: 76 Year
  Sex: Male

DRUGS (1)
  1. LEUPROLIDE [Suspect]
     Active Substance: LEUPROLIDE
     Indication: Product used for unknown indication
     Route: 065

REACTIONS (7)
  - Testicular failure [Unknown]
  - Blood testosterone decreased [Unknown]
  - Muscle atrophy [Unknown]
  - Body fat disorder [Unknown]
  - Prostatic specific antigen decreased [Unknown]
  - Blood gonadotrophin increased [Unknown]
  - Hot flush [Unknown]
